FAERS Safety Report 22765295 (Version 4)
Quarter: 2023Q4

REPORT INFORMATION
  Report Type: Report from Study
  Country: US (occurrence: US)
  Receive Date: 20230731
  Receipt Date: 20231102
  Transmission Date: 20240110
  Serious: No
  Sender: FDA-Public Use
  Company Number: US-DECIPHERA PHARMACEUTICALS LLC-2023US000677

PATIENT
  Age: 57 Year
  Sex: Male

DRUGS (2)
  1. QINLOCK [Suspect]
     Active Substance: RIPRETINIB
     Indication: Gastrointestinal stromal tumour
     Dosage: 100 MILLIGRAM, QD
     Route: 048
     Dates: start: 20230620
  2. QINLOCK [Suspect]
     Active Substance: RIPRETINIB
     Dosage: 100 MILLIGRAM, QD
     Route: 048

REACTIONS (13)
  - Acne [Unknown]
  - Musculoskeletal stiffness [Unknown]
  - Irritability [Unknown]
  - Skin laceration [Unknown]
  - Illness [Unknown]
  - Adverse event [Unknown]
  - Neoplasm progression [Unknown]
  - Hyperkeratosis [Unknown]
  - Melanocytic naevus [Unknown]
  - Pruritus [Unknown]
  - Fatigue [Unknown]
  - Alopecia [Unknown]
  - Underdose [Unknown]

NARRATIVE: CASE EVENT DATE: 20230620
